FAERS Safety Report 21781791 (Version 1)
Quarter: 2022Q4

REPORT INFORMATION
  Report Type: Spontaneous
  Country: US (occurrence: US)
  Receive Date: 20221227
  Receipt Date: 20221227
  Transmission Date: 20230113
  Serious: No
  Sender: FDA-Public Use
  Company Number: US-LEO Pharma-348032

PATIENT
  Sex: Male

DRUGS (1)
  1. ADBRY [Suspect]
     Active Substance: TRALOKINUMAB-LDRM
     Indication: Dermatitis atopic
     Dosage: 300 MG SUBCUTANEOUSLY EVERY TWO WEEKS STARTED - PARTIAL : 11/2022
     Route: 058
     Dates: start: 202211

REACTIONS (1)
  - Hemiparesis [Unknown]
